FAERS Safety Report 11302031 (Version 1)
Quarter: 2015Q3

REPORT INFORMATION
  Report Type: Spontaneous
  Country: US (occurrence: US)
  Receive Date: 20150722
  Receipt Date: 20150722
  Transmission Date: 20151125
  Serious: No
  Sender: FDA-Public Use
  Company Number: US-ELI_LILLY_AND_COMPANY-US200810003485

PATIENT
  Age: 65 Year
  Sex: Female

DRUGS (9)
  1. EVISTA [Suspect]
     Active Substance: RALOXIFENE HYDROCHLORIDE
     Indication: OSTEOPOROSIS
     Dosage: 60 MG, DAILY (1/D)
     Route: 065
  2. LIPITOR [Concomitant]
     Active Substance: ATORVASTATIN CALCIUM
     Dosage: UNK, UNKNOWN
     Route: 065
  3. AVANDIA [Concomitant]
     Active Substance: ROSIGLITAZONE MALEATE
     Dosage: UNK, UNKNOWN
     Route: 065
  4. NEXIUM [Concomitant]
     Active Substance: ESOMEPRAZOLE MAGNESIUM
     Dosage: UNK, UNKNOWN
     Route: 065
  5. CLARINEX [Concomitant]
     Active Substance: DESLORATADINE
     Dosage: UNK, UNKNOWN
     Route: 065
  6. GLIMEPIRIDE. [Concomitant]
     Active Substance: GLIMEPIRIDE
     Dosage: UNK, UNKNOWN
     Route: 065
  7. METFORMIN [Concomitant]
     Active Substance: METFORMIN HYDROCHLORIDE
     Dosage: UNK, UNKNOWN
     Route: 065
  8. TRANDOLAPRIL. [Concomitant]
     Active Substance: TRANDOLAPRIL
     Dosage: UNK, UNKNOWN
     Route: 065
  9. IMODIUM MULTI-SYMPTOM RELIEF [Concomitant]
     Active Substance: DIMETHICONE\LOPERAMIDE HYDROCHLORIDE
     Dosage: UNK, UNKNOWN
     Route: 065

REACTIONS (3)
  - Diabetes mellitus [Not Recovered/Not Resolved]
  - Arthritis [Not Recovered/Not Resolved]
  - Memory impairment [Not Recovered/Not Resolved]
